FAERS Safety Report 9411953 (Version 1)
Quarter: 2013Q2

REPORT INFORMATION
  Report Type: Spontaneous
  Country: US (occurrence: None)
  Receive Date: 20130424
  Receipt Date: 20130424
  Transmission Date: 20140414
  Serious: No
  Sender: FDA-Public Use
  Company Number: 2013-001179

PATIENT
  Age: 22 Year
  Sex: Female

DRUGS (1)
  1. ASACOL [Suspect]
     Route: 048

REACTIONS (3)
  - Gallbladder disorder [None]
  - Pain [None]
  - Weight decreased [None]
